FAERS Safety Report 6251482-4 (Version None)
Quarter: 2009Q2

REPORT INFORMATION
  Report Type: 
  Country: None (occurrence: None)
  Receive Date: 20090630
  Receipt Date: 20090623
  Transmission Date: 20091009
  Serious: No
  Sender: FDA-Public Use
  Company Number: US-JNJFOC-20090608716

PATIENT
  Sex: Female

DRUGS (4)
  1. FENTANYL TRANSDERMAL SYSTEM [Suspect]
     Dosage: 24 TO 72 HOURS AS NEEDED
     Route: 062
  2. FENTANYL TRANSDERMAL SYSTEM [Suspect]
     Indication: ABDOMINAL PAIN
     Route: 062
  3. DURAGESIC-100 [Suspect]
     Dosage: 24 TO 72 HOURS AS NEEDED
     Route: 062
  4. DURAGESIC-100 [Suspect]
     Indication: ABDOMINAL PAIN
     Route: 062

REACTIONS (2)
  - DRUG PRESCRIBING ERROR [None]
  - INADEQUATE ANALGESIA [None]
